FAERS Safety Report 16808827 (Version 2)
Quarter: 2019Q3

REPORT INFORMATION
  Report Type: Spontaneous
  Country: ES (occurrence: ES)
  Receive Date: 20190916
  Receipt Date: 20190919
  Transmission Date: 20191005
  Serious: Yes (Hospitalization, Other)
  Sender: FDA-Public Use
  Company Number: ES-STRIDES ARCOLAB LIMITED-2019SP008641

PATIENT
  Age: 55 Year
  Sex: Male

DRUGS (14)
  1. TENOFOVIR DISOPROXIL FUMARATE. [Interacting]
     Active Substance: TENOFOVIR DISOPROXIL FUMARATE
     Indication: ANTIVIRAL PROPHYLAXIS
     Dosage: 245 MG/DAY
     Route: 065
     Dates: start: 2018
  2. PREDNISOLONE. [Interacting]
     Active Substance: PREDNISOLONE
     Indication: IMMUNOSUPPRESSANT DRUG THERAPY
     Dosage: 10 MG/DAY
     Route: 065
     Dates: start: 2018
  3. TACROLIMUS. [Concomitant]
     Active Substance: TACROLIMUS
     Indication: IMMUNOSUPPRESSANT DRUG THERAPY
     Dosage: 9 MG/DAY
     Route: 065
     Dates: start: 2018
  4. CALCIUM/VITAMIN D                  /01204201/ [Concomitant]
     Active Substance: CALCIUM CARBONATE\ERGOCALCIFEROL
     Indication: PRODUCT USED FOR UNKNOWN INDICATION
     Dosage: UNK
     Route: 065
     Dates: start: 2018
  5. EVEROLIMUS. [Interacting]
     Active Substance: EVEROLIMUS
     Indication: LIVER TRANSPLANT
  6. ENALAPRIL [Concomitant]
     Active Substance: ENALAPRIL
     Indication: PRODUCT USED FOR UNKNOWN INDICATION
     Dosage: 5 MG/DAY
     Route: 065
     Dates: start: 2018
  7. PREDNISOLONE. [Interacting]
     Active Substance: PREDNISOLONE
     Indication: LIVER TRANSPLANT
  8. TACROLIMUS. [Concomitant]
     Active Substance: TACROLIMUS
     Indication: LIVER TRANSPLANT
  9. EVEROLIMUS. [Interacting]
     Active Substance: EVEROLIMUS
     Indication: IMMUNOSUPPRESSANT DRUG THERAPY
     Dosage: 0.75 MG, BID
     Route: 065
  10. MYCOPHENOLATE MOFETIL. [Interacting]
     Active Substance: MYCOPHENOLATE MOFETIL
     Indication: LIVER TRANSPLANT
  11. COTRIMOXAZOLE [Concomitant]
     Active Substance: SULFAMETHOXAZOLE\TRIMETHOPRIM
     Indication: PRODUCT USED FOR UNKNOWN INDICATION
     Dosage: 160/800 MG/DAY
     Route: 065
     Dates: start: 2018
  12. FOLIC ACID. [Concomitant]
     Active Substance: FOLIC ACID
     Indication: PRODUCT USED FOR UNKNOWN INDICATION
     Dosage: 5 MG/DAY
     Route: 065
     Dates: start: 2018
  13. INSULIN [Concomitant]
     Active Substance: INSULIN NOS
     Indication: PRODUCT USED FOR UNKNOWN INDICATION
     Dosage: UNK
     Route: 065
     Dates: start: 2018
  14. MYCOPHENOLATE MOFETIL. [Suspect]
     Active Substance: MYCOPHENOLATE MOFETIL
     Indication: IMMUNOSUPPRESSANT DRUG THERAPY
     Dosage: 360 MG, EVERY 12 HRS
     Route: 065
     Dates: start: 2018

REACTIONS (7)
  - Glycosuria [Recovered/Resolved]
  - Drug interaction [Unknown]
  - Fanconi syndrome [Unknown]
  - Hyperphosphaturia [Recovered/Resolved]
  - Hyperuricosuria [Recovered/Resolved]
  - Toxicity to various agents [Unknown]
  - Proteinuria [Recovered/Resolved]
